FAERS Safety Report 18917258 (Version 3)
Quarter: 2021Q3

REPORT INFORMATION
  Report Type: Spontaneous
  Country: CL (occurrence: CL)
  Receive Date: 20210219
  Receipt Date: 20210915
  Transmission Date: 20211014
  Serious: Yes (Other)
  Sender: FDA-Public Use
  Company Number: CL-PFIZER INC-2021123581

PATIENT
  Age: 64 Year
  Sex: Female

DRUGS (1)
  1. GENOTROPIN [Suspect]
     Active Substance: SOMATROPIN
     Dosage: UNK

REACTIONS (4)
  - Fatigue [Unknown]
  - Device breakage [Unknown]
  - Hypothalamo-pituitary disorder [Unknown]
  - Device use error [Unknown]

NARRATIVE: CASE EVENT DATE: 2020
